FAERS Safety Report 5572251-4 (Version None)
Quarter: 2007Q4

REPORT INFORMATION
  Report Type: 
  Country: None (occurrence: None)
  Receive Date: 20071221
  Receipt Date: 20071218
  Transmission Date: 20080405
  Serious: Yes (Life-Threatening, Hospitalization)
  Sender: FDA-Public Use
  Company Number: US-GILEAD-2007-0014705

PATIENT
  Age: 48 Year
  Sex: Male
  Weight: 88.6 kg

DRUGS (17)
  1. EMTRICITABINE/TENOFOVIR DISOPROXIL FUMARATE [Suspect]
     Indication: HIV INFECTION
     Route: 048
     Dates: start: 20051205
  2. EFAVIRENZ [Concomitant]
     Indication: HIV INFECTION
     Route: 048
     Dates: start: 20051205
  3. ABACAVIR/LAMIVUDINE [Concomitant]
     Indication: HIV INFECTION
     Route: 048
     Dates: start: 20051205
  4. CLONIDINE [Concomitant]
     Route: 048
     Dates: start: 20050101
  5. SEROQUEL [Concomitant]
     Route: 048
     Dates: start: 20050101
  6. COMBIVENT [Concomitant]
     Route: 055
  7. IBUPROFEN [Concomitant]
     Route: 048
  8. IBUPROFEN [Concomitant]
     Route: 048
  9. ZANTAC PM [Concomitant]
     Route: 048
     Dates: start: 20050101
  10. LISINOPRIL [Concomitant]
     Route: 048
     Dates: start: 20070101
  11. ALBUTEROL [Concomitant]
     Route: 055
     Dates: start: 20050101
  12. LEVALBUTEROL HCL [Concomitant]
     Route: 055
     Dates: start: 20071207
  13. ALBUTEROL SULFATE AND IPRATROPIUM BROMIDE [Concomitant]
     Route: 055
     Dates: start: 20071207
  14. FOLIC ACID [Concomitant]
     Route: 048
     Dates: start: 20071207
  15. VITAMIN CAP [Concomitant]
     Route: 048
  16. PANTOPRAZOLE SODIUM [Concomitant]
     Route: 048
     Dates: start: 20071207
  17. THIAMINE [Concomitant]
     Route: 048
     Dates: start: 20071207

REACTIONS (1)
  - SUICIDAL IDEATION [None]
